FAERS Safety Report 7409508-8 (Version None)
Quarter: 2011Q2

REPORT INFORMATION
  Report Type: 
  Country: None (occurrence: None)
  Receive Date: 20110407
  Receipt Date: 20110407
  Transmission Date: 20111010
  Serious: Yes (Hospitalization)
  Sender: FDA-Public Use
  Company Number: None

PATIENT
  Sex: Female
  Weight: 68.2 kg

DRUGS (4)
  1. DOXORUBICIN HCL [Suspect]
     Dosage: 210 MG
     Dates: end: 20110325
  2. CYCLOPHOSPHAMIDE [Suspect]
     Dosage: 2080 MG
     Dates: end: 20110325
  3. TAXOL [Suspect]
     Dosage: 1540 MG
     Dates: end: 20110304
  4. NEULASTA [Suspect]
     Dosage: 12 MG
     Dates: end: 20110326

REACTIONS (11)
  - HEADACHE [None]
  - ANAEMIA [None]
  - DIZZINESS [None]
  - NEUTROPENIA [None]
  - DECREASED APPETITE [None]
  - CHILLS [None]
  - MALAISE [None]
  - DEHYDRATION [None]
  - DYSGEUSIA [None]
  - DIARRHOEA [None]
  - HYPOPHAGIA [None]
